FAERS Safety Report 16260732 (Version 10)
Quarter: 2021Q3

REPORT INFORMATION
  Report Type: Spontaneous
  Country: US (occurrence: US)
  Receive Date: 20190501
  Receipt Date: 20210906
  Transmission Date: 20211014
  Serious: Yes (Other)
  Sender: FDA-Public Use
  Company Number: US-PFIZER INC-2019181996

PATIENT
  Age: 32 Year
  Sex: Female

DRUGS (17)
  1. LEXAPRO [Concomitant]
     Active Substance: ESCITALOPRAM OXALATE
     Dosage: 10 MG, 1X/DAY
  2. POLYETHYLENE GLYCOL [Concomitant]
     Active Substance: POLYETHYLENE GLYCOLS
     Dosage: 17 G, AS NEEDED (POWDER PACKET)
  3. TRAMADOL. [Concomitant]
     Active Substance: TRAMADOL
     Dosage: 50 MG, 2X/DAY
     Route: 048
  4. IBUPROFEN. [Concomitant]
     Active Substance: IBUPROFEN
     Dosage: UNK
  5. NAPROSYN [Concomitant]
     Active Substance: NAPROXEN
     Dosage: UNK
  6. CHANTIX [Suspect]
     Active Substance: VARENICLINE TARTRATE
     Dosage: 0.5 MG, 11 TABLETS (AS DIRECTED)
     Route: 048
  7. CHANTIX [Suspect]
     Active Substance: VARENICLINE TARTRATE
     Dosage: UNK
     Dates: start: 2015
  8. CHANTIX [Suspect]
     Active Substance: VARENICLINE TARTRATE
     Dosage: 1 MG, 42 TABLETS (AS DIRECTED)
     Route: 048
  9. INGREZZA [Concomitant]
     Active Substance: VALBENAZINE
     Dosage: 40 MG, DAILY
  10. NAPROXEN. [Concomitant]
     Active Substance: NAPROXEN
     Dosage: UNK
  11. TROKENDI XR [Concomitant]
     Active Substance: TOPIRAMATE
     Dosage: UNK
  12. CHANTIX [Suspect]
     Active Substance: VARENICLINE TARTRATE
     Dosage: UNK
     Dates: start: 201605
  13. CHANTIX [Suspect]
     Active Substance: VARENICLINE TARTRATE
     Indication: SMOKING CESSATION THERAPY
     Dosage: UNK
     Dates: start: 2013
  14. INGREZZA [Concomitant]
     Active Substance: VALBENAZINE
     Dosage: 80 MG, 1X/DAY
  15. RISPERDAL [Concomitant]
     Active Substance: RISPERIDONE
     Dosage: 1 MG
  16. SALONPAS PAIN RELIEF [Concomitant]
     Active Substance: MENTHOL\METHYL SALICYLATE
     Dosage: UNK
  17. TYLENOL [Concomitant]
     Active Substance: ACETAMINOPHEN
     Dosage: UNK

REACTIONS (29)
  - Muscle spasms [Unknown]
  - Fatigue [Unknown]
  - Dyspnoea [Unknown]
  - Depression [Unknown]
  - Frustration tolerance decreased [Unknown]
  - Affective disorder [Unknown]
  - Dizziness [Unknown]
  - Muscular weakness [Unknown]
  - Malaise [Unknown]
  - Dystonia [Unknown]
  - Anxiety [Unknown]
  - Chest pain [Unknown]
  - Cervical spinal stenosis [Unknown]
  - Abdominal pain [Unknown]
  - Myalgia [Unknown]
  - Arthralgia [Unknown]
  - Gait disturbance [Unknown]
  - Loss of personal independence in daily activities [Unknown]
  - Movement disorder [Not Recovered/Not Resolved]
  - Intervertebral disc protrusion [Unknown]
  - Spondylitis [Unknown]
  - Cognitive disorder [Unknown]
  - Myoclonus [Not Recovered/Not Resolved]
  - Abdominal rigidity [Unknown]
  - Weight decreased [Unknown]
  - Bipolar disorder [Unknown]
  - Spinal pain [Unknown]
  - Kyphosis [Unknown]
  - Chills [Unknown]

NARRATIVE: CASE EVENT DATE: 2013
